FAERS Safety Report 5400425-1 (Version None)
Quarter: 2007Q3

REPORT INFORMATION
  Report Type: 
  Country: None (occurrence: None)
  Receive Date: 20070730
  Receipt Date: 20070720
  Transmission Date: 20080115
  Serious: Yes (Other)
  Sender: FDA-Public Use
  Company Number: B0480809A

PATIENT
  Age: 60 Year
  Sex: Female
  Weight: 80 kg

DRUGS (1)
  1. AUGMENTIN '125' [Suspect]
     Indication: CHRONIC TONSILLITIS
     Dosage: 1G TWICE PER DAY
     Route: 065

REACTIONS (3)
  - DYSGEUSIA [None]
  - FLATULENCE [None]
  - HEADACHE [None]
